FAERS Safety Report 8977436 (Version 1)
Quarter: 2012Q4

REPORT INFORMATION
  Report Type: 
  Country: PT (occurrence: PT)
  Receive Date: 20121220
  Receipt Date: 20121220
  Transmission Date: 20130627
  Serious: Yes (Other)
  Sender: FDA-Public Use
  Company Number: PT-BAXTER-2012BAX028400

PATIENT
  Age: 60 Year
  Sex: Female

DRUGS (7)
  1. ENDOXAN [Suspect]
     Indication: WEAKNESS OF LIMBS
     Route: 042
  2. ENDOXAN [Suspect]
     Indication: ATAXIA
  3. ENDOXAN [Suspect]
     Indication: OFF LABEL USE
  4. GABAPENTIN [Concomitant]
     Indication: ATAXIA
     Route: 065
  5. GABAPENTIN [Concomitant]
     Indication: WEAKNESS OF LIMBS
  6. PREDNISOLONE [Concomitant]
     Indication: ATAXIA
     Route: 065
  7. PREDNISOLONE [Concomitant]
     Indication: WEAKNESS OF LIMBS

REACTIONS (1)
  - Treatment failure [Recovered/Resolved]
